FAERS Safety Report 5531459-4 (Version None)
Quarter: 2007Q4

REPORT INFORMATION
  Report Type: 
  Country: None (occurrence: None)
  Receive Date: 20071128
  Receipt Date: 20071128
  Transmission Date: 20080405
  Serious: Yes (Other)
  Sender: FDA-Public Use
  Company Number: None

PATIENT
  Age: 73 Year
  Sex: Female
  Weight: 77.1115 kg

DRUGS (1)
  1. CHANTIX [Suspect]
     Indication: SMOKING CESSATION THERAPY
     Dosage: 1 TAB 2X DAILY PO
     Route: 048
     Dates: start: 20070615, end: 20070915

REACTIONS (3)
  - ABNORMAL DREAMS [None]
  - GASTROINTESTINAL DISORDER [None]
  - TREMOR [None]
